FAERS Safety Report 8474757-7 (Version None)
Quarter: 2012Q2

REPORT INFORMATION
  Report Type: 
  Country: None (occurrence: None)
  Receive Date: 20120621
  Receipt Date: 20120523
  Transmission Date: 20120825
  Serious: No
  Sender: FDA-Public Use
  Company Number: INT_00072_2012

PATIENT
  Age: 50 Year
  Sex: Female

DRUGS (4)
  1. ZEBETA [Concomitant]
  2. CEFTRIAXONE [Suspect]
     Indication: PRODUCT USED FOR UNKNOWN INDICATION
     Dosage: UNKNOWN DF
  3. INDAPAMIDUM [Concomitant]
  4. ACITRETIN [Suspect]
     Indication: PSORIASIS
     Dosage: UNKNOWN DF

REACTIONS (21)
  - DERMATITIS EXFOLIATIVE [None]
  - HAEMATOCRIT DECREASED [None]
  - CARDIAC DISORDER [None]
  - DRUG HYPERSENSITIVITY [None]
  - DELUSION [None]
  - PAROSMIA [None]
  - BUNDLE BRANCH BLOCK RIGHT [None]
  - POISONING [None]
  - LOCAL SWELLING [None]
  - HYPERKERATOSIS [None]
  - XANTHELASMA [None]
  - HEPATIC STEATOSIS [None]
  - BODY MASS INDEX INCREASED [None]
  - MANIA [None]
  - HAEMOGLOBIN DECREASED [None]
  - ADRENAL ADENOMA [None]
  - DEPRESSION [None]
  - GAMMA-GLUTAMYLTRANSFERASE INCREASED [None]
  - DYSLIPIDAEMIA [None]
  - BLOOD THYROID STIMULATING HORMONE DECREASED [None]
  - TRI-IODOTHYRONINE FREE DECREASED [None]
